FAERS Safety Report 7272091-4 (Version None)
Quarter: 2011Q1

REPORT INFORMATION
  Report Type: 
  Country: None (occurrence: None)
  Receive Date: 20110203
  Receipt Date: 20110117
  Transmission Date: 20110831
  Serious: Yes (Other)
  Sender: FDA-Public Use
  Company Number: SE-SOLVAY-00311000824

PATIENT
  Age: 55 Year
  Sex: Male

DRUGS (3)
  1. TESTOSTERONE [Suspect]
     Indication: PRODUCT USED FOR UNKNOWN INDICATION
     Dosage: DAILY DOSE: 250 MILLIGRAM(S), AS USED: 50MG, FREQUENCY: 5 IN 1 DAY
     Route: 062
  2. TESTOSTERONE [Suspect]
     Dosage: DAILY DOSE: 100 MILLIGRAM(S)
     Route: 062
  3. TESTOSTERONE [Suspect]
     Dosage: DAILY DOSE: 50 MILLIGRAM(S)
     Route: 062

REACTIONS (2)
  - AGGRESSION [None]
  - INCORRECT DOSE ADMINISTERED [None]
